FAERS Safety Report 13893832 (Version 1)
Quarter: 2017Q3

REPORT INFORMATION
  Report Type: Spontaneous
  Country: US (occurrence: US)
  Receive Date: 20170822
  Receipt Date: 20170822
  Transmission Date: 20171127
  Serious: No
  Sender: FDA-Public Use
  Company Number: US-GALDERMA-US16006321

PATIENT
  Age: 78 Year
  Sex: Female
  Weight: 65.83 kg

DRUGS (2)
  1. METRONIDAZOLE GEL, 1% [Suspect]
     Active Substance: METRONIDAZOLE
     Indication: DERMATITIS
     Dosage: 1%
     Route: 061
     Dates: start: 20160907
  2. LOSARTAN. [Concomitant]
     Active Substance: LOSARTAN
     Dosage: 100 MG
     Route: 048

REACTIONS (4)
  - Paraesthesia oral [Recovered/Resolved]
  - Product use in unapproved indication [Unknown]
  - Haemoptysis [Recovered/Resolved]
  - Accidental exposure to product [Unknown]

NARRATIVE: CASE EVENT DATE: 20160913
